FAERS Safety Report 12173532 (Version 4)
Quarter: 2016Q2

REPORT INFORMATION
  Report Type: Spontaneous
  Country: CN (occurrence: CN)
  Receive Date: 20160311
  Receipt Date: 20160527
  Transmission Date: 20160815
  Serious: Yes (Hospitalization, Other)
  Sender: FDA-Public Use
  Company Number: CN-ASTRAZENECA-2016SE23532

PATIENT
  Age: 69 Year
  Sex: Male

DRUGS (6)
  1. SYMBICORT [Suspect]
     Active Substance: BUDESONIDE\FORMOTEROL FUMARATE DIHYDRATE
     Indication: ASTHMA
     Dosage: 160 UG, 1 INHALATION TWICE DAILY
     Route: 055
     Dates: start: 2015
  2. SYMBICORT [Suspect]
     Active Substance: BUDESONIDE\FORMOTEROL FUMARATE DIHYDRATE
     Indication: ASTHMA
     Dosage: 160 UG, 1 INHALATION DAILY INTERMITTENT
     Route: 055
     Dates: start: 20160229
  3. SYMBICORT [Suspect]
     Active Substance: BUDESONIDE\FORMOTEROL FUMARATE DIHYDRATE
     Indication: ASTHMA
     Dosage: 160 UG, 1 INHALATION AT TIMES INSTEAD OF EVERY DAY INTERMITTENT
     Route: 055
  4. SYMBICORT [Suspect]
     Active Substance: BUDESONIDE\FORMOTEROL FUMARATE DIHYDRATE
     Indication: ASTHMA
     Dosage: 160 UG, 1 INHALATION TWO TIMES DAILY INTERMITTENT
     Route: 055
     Dates: start: 20160309
  5. SYMBICORT [Suspect]
     Active Substance: BUDESONIDE\FORMOTEROL FUMARATE DIHYDRATE
     Indication: ASTHMA
     Dosage: 160 UG, 1 INHALATION TWICE DAILY INTERMITTENT
     Route: 055
     Dates: start: 201601
  6. CEPHALOSPORIN [Concomitant]
     Active Substance: UNSPECIFIED INGREDIENT

REACTIONS (15)
  - Malnutrition [Unknown]
  - Vision blurred [Unknown]
  - Renal impairment [Unknown]
  - Hypertension [Unknown]
  - Chest discomfort [Recovered/Resolved]
  - Visual acuity reduced [Not Recovered/Not Resolved]
  - Cardiac disorder [Unknown]
  - Weight increased [Unknown]
  - Sexual dysfunction [Unknown]
  - Chronic obstructive pulmonary disease [Recovering/Resolving]
  - Nocturia [Not Recovered/Not Resolved]
  - Dyspnoea [Recovered/Resolved]
  - Liver disorder [Unknown]
  - Back pain [Unknown]
  - Intentional product misuse [Unknown]

NARRATIVE: CASE EVENT DATE: 201602
